FAERS Safety Report 10144174 (Version 2)
Quarter: 2014Q2

REPORT INFORMATION
  Report Type: Spontaneous
  Country: US (occurrence: US)
  Receive Date: 20140430
  Receipt Date: 20140430
  Transmission Date: 20141212
  Serious: Yes (Other)
  Sender: FDA-Public Use
  Company Number: PHHY2013US131857

PATIENT
  Age: 66 Year
  Sex: Male

DRUGS (12)
  1. CHLORTALIDONE [Suspect]
     Dosage: 25 MG, UNK
     Route: 048
  2. DILTIAZEM [Concomitant]
     Dosage: 240 MG, QD
     Route: 048
  3. PRAVASTATIN [Concomitant]
     Dosage: 40 MG, AT BED TIME
     Route: 048
  4. OXYCODONE [Concomitant]
     Dosage: 5 MG, BID
     Route: 048
  5. IBUPROFEN [Concomitant]
     Indication: PAIN
     Dosage: 800 MG, TID
     Route: 048
  6. OMEPRAZOLE [Concomitant]
     Dosage: 20 MG, EVERY MORNING
     Route: 048
  7. ASPIRIN [Concomitant]
     Dosage: 81 MG, ONCE DAILY
     Route: 048
  8. MORPHINE SULFATE [Concomitant]
     Dosage: 15 MG, AT BED TIME
     Route: 048
  9. POTASSIUM CHLORIDE [Concomitant]
     Dosage: 20 MEQ, ONCE DAILY
     Route: 048
  10. CYANOCOBALAMIN [Concomitant]
     Dosage: 1000 UG, ONCE DAILY
     Route: 048
  11. FOLIC ACID [Concomitant]
     Dosage: 1 MG, DAILY
     Route: 048
  12. THIAMINE [Concomitant]
     Dosage: 100 MG, DAILY
     Route: 048

REACTIONS (1)
  - Renin increased [Recovered/Resolved]
